FAERS Safety Report 24341925 (Version 1)
Quarter: 2024Q3

REPORT INFORMATION
  Report Type: Spontaneous
  Country: US (occurrence: US)
  Receive Date: 20240920
  Receipt Date: 20240920
  Transmission Date: 20241016
  Serious: Yes (Death, Other)
  Sender: CHATTEM
  Company Number: US-OPELLA-2024OHG032088

PATIENT
  Sex: Male

DRUGS (1)
  1. TALC [Suspect]
     Active Substance: TALC
     Indication: Product used for unknown indication

REACTIONS (11)
  - Lung neoplasm malignant [Fatal]
  - Brain cancer metastatic [Fatal]
  - Encephalopathy [Fatal]
  - Hyperthyroidism [Fatal]
  - Hypertension [Fatal]
  - Mesothelioma [Unknown]
  - Interstitial lung disease [Unknown]
  - Exposure to chemical pollution [Unknown]
  - Asbestosis [Unknown]
  - Dyspnoea [Unknown]
  - Occupational exposure to product [Unknown]

NARRATIVE: CASE EVENT DATE: 19720101
